FAERS Safety Report 20646294 (Version 1)
Quarter: 2022Q1

REPORT INFORMATION
  Report Type: Spontaneous
  Country: US (occurrence: US)
  Receive Date: 20220329
  Receipt Date: 20220329
  Transmission Date: 20220423
  Serious: No
  Sender: FDA-Public Use
  Company Number: US-drreddys-SPO/USA/22/0148008

PATIENT
  Sex: Female

DRUGS (2)
  1. GEMCITABINE [Suspect]
     Active Substance: GEMCITABINE
     Indication: Ovarian cancer recurrent
  2. GEMCITABINE [Suspect]
     Active Substance: GEMCITABINE
     Indication: Ovarian cancer stage III

REACTIONS (1)
  - Drug hypersensitivity [Unknown]
